FAERS Safety Report 9371718 (Version 2)
Quarter: 2013Q3

REPORT INFORMATION
  Report Type: Spontaneous
  Country: TH (occurrence: TH)
  Receive Date: 20130627
  Receipt Date: 20130809
  Transmission Date: 20140515
  Serious: Yes (Death, Other)
  Sender: FDA-Public Use
  Company Number: TH-GENZYME-THYM-1003873

PATIENT
  Age: 62 Year
  Sex: Female
  Weight: 44 kg

DRUGS (2)
  1. THYMOGLOBULINE [Suspect]
     Indication: RENAL TRANSPLANT
     Dosage: 75 MG, UNK
     Route: 042
     Dates: start: 20130617, end: 20130618
  2. TACROLIMUS [Concomitant]
     Indication: IMMUNOSUPPRESSANT DRUG THERAPY
     Dosage: 10 MG/DAY, QD
     Route: 048
     Dates: start: 20130617, end: 20130618

REACTIONS (2)
  - Blood pressure decreased [Fatal]
  - Systemic inflammatory response syndrome [Unknown]
